FAERS Safety Report 21534003 (Version 5)
Quarter: 2023Q1

REPORT INFORMATION
  Report Type: Spontaneous
  Country: US (occurrence: US)
  Receive Date: 20221101
  Receipt Date: 20230321
  Transmission Date: 20230417
  Serious: Yes (Hospitalization, Other)
  Sender: FDA-Public Use
  Company Number: US-GLAXOSMITHKLINE-US2022155399

PATIENT

DRUGS (1)
  1. ZEJULA [Suspect]
     Active Substance: NIRAPARIB
     Indication: Ovarian cancer
     Dosage: 200 MG, QD
     Route: 048
     Dates: start: 20220927

REACTIONS (9)
  - Delirium [Unknown]
  - Personality change [Unknown]
  - Anxiety [Unknown]
  - Tension headache [Unknown]
  - Feeling jittery [Unknown]
  - Vision blurred [Unknown]
  - Unresponsive to stimuli [Unknown]
  - Insomnia [Recovered/Resolved]
  - Constipation [Recovered/Resolved]
